FAERS Safety Report 9459268 (Version 3)
Quarter: 2013Q3

REPORT INFORMATION
  Report Type: Report from Study
  Country: IT (occurrence: IT)
  Receive Date: 20130815
  Receipt Date: 20130918
  Transmission Date: 20140515
  Serious: Yes (Hospitalization, Other)
  Sender: FDA-Public Use
  Company Number: IT-ROCHE-1261867

PATIENT
  Age: 59 Year
  Sex: Female

DRUGS (14)
  1. BEVACIZUMAB [Suspect]
     Indication: ENDOMETRIAL ADENOCARCINOMA
     Route: 042
     Dates: start: 20120713, end: 20130703
  2. LASIX [Concomitant]
     Route: 048
  3. LEVOTIROXINA [Concomitant]
     Route: 048
  4. ALDACTONE (ITALY) [Concomitant]
     Dosage: 2 CP
     Route: 048
  5. LEVOPRAID [Concomitant]
     Route: 065
  6. PLASIL [Concomitant]
     Route: 048
  7. PLASIL [Concomitant]
     Dosage: AS NEEDED IN CASE OF SEVERE NAUSEA
     Route: 030
  8. SOLDESAM [Concomitant]
     Dosage: AS NEEDED IN CASE OF SEVERE NAUSEA
     Route: 030
  9. METFORAL [Concomitant]
     Route: 048
  10. SOLOSA [Concomitant]
     Route: 048
  11. CRESTOR [Concomitant]
     Route: 048
  12. PANTORC [Concomitant]
     Route: 048
  13. NEURABEN [Concomitant]
     Dosage: 1CP
     Route: 048
  14. LYRICA [Concomitant]
     Route: 048

REACTIONS (2)
  - General physical health deterioration [Unknown]
  - Cardiac ventricular thrombosis [Unknown]
